FAERS Safety Report 11191920 (Version 1)
Quarter: 2015Q2

REPORT INFORMATION
  Report Type: Spontaneous
  Country: GB (occurrence: GB)
  Receive Date: 20150616
  Receipt Date: 20150616
  Transmission Date: 20150821
  Serious: Yes (Life-Threatening, Hospitalization)
  Sender: FDA-Public Use
  Company Number: GB-EISAI MEDICAL RESEARCH-EC-2015-007606

PATIENT
  Age: 32 Year
  Sex: Male
  Weight: 67 kg

DRUGS (6)
  1. SULFASALAZINE DELAYED-RELEASE [Suspect]
     Active Substance: SULFASALAZINE
     Indication: PSORIATIC ARTHROPATHY
     Dates: start: 20150427, end: 20150526
  2. RABEPRAZOLE [Suspect]
     Active Substance: RABEPRAZOLE
     Indication: PSORIATIC ARTHROPATHY
     Route: 048
     Dates: start: 20150427, end: 20150527
  3. DEFLAZACORT [Suspect]
     Active Substance: DEFLAZACORT
     Indication: PSORIATIC ARTHROPATHY
     Route: 048
     Dates: start: 20150526, end: 20150527
  4. ITOPRIDE [Suspect]
     Active Substance: ITOPRIDE
     Indication: PSORIATIC ARTHROPATHY
     Dates: start: 20150427, end: 20150527
  5. ETOVA P [Suspect]
     Active Substance: ACETAMINOPHEN\ETODOLAC
     Indication: PSORIATIC ARTHROPATHY
     Route: 048
     Dates: start: 20150426, end: 20150526
  6. AZATHIOPRINE. [Suspect]
     Active Substance: AZATHIOPRINE
     Indication: PSORIATIC ARTHROPATHY
     Route: 048
     Dates: start: 20150427, end: 20150527

REACTIONS (4)
  - Diarrhoea [Unknown]
  - Hepatic function abnormal [Unknown]
  - Rash [Unknown]
  - Acute hepatic failure [Unknown]

NARRATIVE: CASE EVENT DATE: 2015
